FAERS Safety Report 5999699-8 (Version None)
Quarter: 2008Q4

REPORT INFORMATION
  Report Type: 
  Country: None (occurrence: None)
  Receive Date: 20081211
  Receipt Date: 20081211
  Transmission Date: 20090506
  Serious: Yes (Life-Threatening)
  Sender: FDA-Public Use
  Company Number: None

PATIENT
  Age: 10 Year
  Sex: Female
  Weight: 36 kg

DRUGS (4)
  1. ENBREL [Suspect]
     Indication: JUVENILE ARTHRITIS
     Dosage: 10 MG TWICE A WEEK SQ
     Route: 058
     Dates: end: 20040101
  2. ENBREL [Suspect]
     Dosage: 20 MG ONCE A WEEK SQ
     Route: 058
     Dates: start: 20040101, end: 20050101
  3. METHOTREXATE [Concomitant]
  4. PREDNISONE TAB [Concomitant]

REACTIONS (1)
  - HODGKIN'S DISEASE [None]
